FAERS Safety Report 12769085 (Version 3)
Quarter: 2016Q4

REPORT INFORMATION
  Report Type: Spontaneous
  Country: JP (occurrence: JP)
  Receive Date: 20160921
  Receipt Date: 20161118
  Transmission Date: 20170207
  Serious: Yes (Life-Threatening)
  Sender: FDA-Public Use
  Company Number: JP-MYLANLABS-2016M1039589

PATIENT

DRUGS (10)
  1. REMIFENTANIL [Suspect]
     Active Substance: REMIFENTANIL
     Indication: INDUCTION OF ANAESTHESIA
     Dosage: UNK
     Route: 065
     Dates: start: 20120417
  2. PROPOFOL. [Suspect]
     Active Substance: PROPOFOL
     Indication: INDUCTION OF ANAESTHESIA
     Dosage: UNK
     Route: 065
     Dates: start: 20120417
  3. DEPAS [Concomitant]
     Active Substance: ETIZOLAM
     Indication: DEPRESSION
     Dosage: 0.5 MG, BID
     Route: 048
  4. ESLAX [Suspect]
     Active Substance: ROCURONIUM BROMIDE
     Indication: INDUCTION OF ANAESTHESIA
     Dosage: UNK
     Route: 065
     Dates: start: 20120417
  5. TRAZODONE [Concomitant]
     Active Substance: TRAZODONE HYDROCHLORIDE
     Indication: DEPRESSION
     Dosage: 25 MG, QD
     Route: 048
  6. TAKEPRON [Concomitant]
     Active Substance: LANSOPRAZOLE
     Indication: PROPHYLAXIS AGAINST GASTROINTESTINAL ULCER
     Dosage: 30 MG, QD
     Route: 048
     Dates: start: 20120101
  7. PLAVIX [Concomitant]
     Active Substance: CLOPIDOGREL BISULFATE
     Indication: CEREBROVASCULAR ACCIDENT PROPHYLAXIS
     Dosage: 75 MG, QD
     Route: 048
     Dates: start: 20120101
  8. MICARDIS [Concomitant]
     Active Substance: TELMISARTAN
     Indication: HYPERTENSION
     Dosage: 40 MG, QD
     Route: 048
     Dates: start: 20120101
  9. SEVOFLURANE MYLAN [Suspect]
     Active Substance: SEVOFLURANE
     Indication: MAINTENANCE OF ANAESTHESIA
     Dosage: UNK
     Route: 065
     Dates: start: 20120417
  10. AMOXAN [Concomitant]
     Active Substance: AMOXAPINE
     Indication: DEPRESSION
     Dosage: 25 MG, BID
     Route: 048

REACTIONS (3)
  - Arteriospasm coronary [Recovered/Resolved]
  - Atrioventricular block complete [Recovered/Resolved]
  - Cardiac arrest [Recovered/Resolved]

NARRATIVE: CASE EVENT DATE: 20120417
